FAERS Safety Report 8803853 (Version 1)
Quarter: 2012Q4

REPORT INFORMATION
  Report Type: 
  Country: IT (occurrence: IT)
  Receive Date: 20120923
  Receipt Date: 20120923
  Transmission Date: 20130627
  Serious: Yes (Hospitalization)
  Sender: FDA-Public Use
  Company Number: IT-MYLANLABS-2012S1019109

PATIENT
  Age: 62 Year
  Sex: Female

DRUGS (3)
  1. NIMESULIDE [Suspect]
     Indication: HEADACHE
     Route: 048
     Dates: start: 20120815, end: 20120815
  2. ALENDRONATE SODIUM [Suspect]
     Indication: OSTEOPOROSIS
     Route: 048
     Dates: start: 20110201, end: 20120815
  3. NEBIVOLOL [Concomitant]
     Indication: PRODUCT USED FOR UNKNOWN INDICATION

REACTIONS (3)
  - Anaemia [Recovered/Resolved with Sequelae]
  - Gastric ulcer [Recovered/Resolved with Sequelae]
  - Erosive oesophagitis [Recovered/Resolved with Sequelae]
